FAERS Safety Report 9616940 (Version 1)
Quarter: 2013Q4

REPORT INFORMATION
  Report Type: Spontaneous
  Country: CN (occurrence: CN)
  Receive Date: 20131011
  Receipt Date: 20131011
  Transmission Date: 20140711
  Serious: Yes (Life-Threatening, Hospitalization, Other)
  Sender: FDA-Public Use
  Company Number: CN-ROXANE LABORATORIES, INC.-2013-RO-01638RO

PATIENT
  Age: 98 Year
  Sex: Male

DRUGS (5)
  1. CITALOPRAM [Suspect]
     Indication: DEPRESSION
     Dosage: 2.5 MG
  2. AMIODARONE [Suspect]
     Indication: ATRIAL FIBRILLATION
     Dosage: 200 MG
  3. LINEZOLID [Suspect]
     Indication: PNEUMONIA STAPHYLOCOCCAL
     Dosage: 1200 MG
     Route: 042
  4. MIDAZOLAM [Suspect]
     Indication: SEROTONIN SYNDROME
     Route: 042
  5. PROPOFOL [Suspect]
     Indication: SEROTONIN SYNDROME

REACTIONS (3)
  - Serotonin syndrome [Recovered/Resolved]
  - Pneumonia staphylococcal [Unknown]
  - Respiratory depression [Recovered/Resolved]
